FAERS Safety Report 7731485-0 (Version None)
Quarter: 2011Q3

REPORT INFORMATION
  Report Type: 
  Country: None (occurrence: None)
  Receive Date: 20110906
  Receipt Date: 20110603
  Transmission Date: 20111222
  Serious: No
  Sender: FDA-Public Use
  Company Number: US-AMGEN-USASP2011028745

PATIENT
  Sex: Female

DRUGS (7)
  1. VITAMIN B12                        /01750001/ [Concomitant]
  2. CALCIUM CARBONATE [Concomitant]
  3. VITAMIN D [Concomitant]
     Dosage: 1 IU, QD
  4. CALTRATE + D                       /01204201/ [Concomitant]
  5. FISH OIL [Concomitant]
  6. PROLIA [Suspect]
     Indication: OSTEOPOROSIS POSTMENOPAUSAL
     Dosage: 60 MG, Q6MO
     Dates: start: 20110512
  7. MUCINEX [Concomitant]

REACTIONS (2)
  - ARTHRALGIA [None]
  - JOINT STIFFNESS [None]
